FAERS Safety Report 6706583-0 (Version None)
Quarter: 2010Q2

REPORT INFORMATION
  Report Type: 
  Country: None (occurrence: None)
  Receive Date: 20100503
  Receipt Date: 20100423
  Transmission Date: 20101027
  Serious: Yes (Death, Hospitalization)
  Sender: FDA-Public Use
  Company Number: JP-ROCHE-676682

PATIENT
  Sex: Male
  Weight: 58 kg

DRUGS (5)
  1. AVASTIN [Suspect]
     Indication: RECTAL CANCER METASTATIC
     Route: 041
     Dates: start: 20090811, end: 20091222
  2. ELPLAT [Concomitant]
     Route: 041
     Dates: start: 20090811, end: 20091222
  3. TS-1 [Concomitant]
     Route: 048
     Dates: start: 20090811, end: 20091224
  4. MUCOSTA [Concomitant]
     Dosage: FORM: PERORAL AGENT
     Route: 048
     Dates: start: 20090812
  5. LOXONIN [Concomitant]
     Dosage: FORM: PERORAL AGENT
     Route: 048
     Dates: start: 20090821

REACTIONS (4)
  - DISSEMINATED INTRAVASCULAR COAGULATION [None]
  - ILEAL PERFORATION [None]
  - NEUROPATHY PERIPHERAL [None]
  - PERITONITIS [None]
